FAERS Safety Report 4754469-3 (Version None)
Quarter: 2005Q3

REPORT INFORMATION
  Report Type: 
  Country: None (occurrence: None)
  Receive Date: 20050829
  Receipt Date: 20050418
  Transmission Date: 20060218
  Serious: No
  Sender: FDA-Public Use
  Company Number: US-GLAXOSMITHKLINE-A0554529A

PATIENT
  Age: 8 Year
  Sex: Female

DRUGS (1)
  1. ZOVIRAX [Suspect]
     Route: 048
     Dates: start: 19950101, end: 19950101

REACTIONS (4)
  - ATTENTION DEFICIT/HYPERACTIVITY DISORDER [None]
  - DRUG EXPOSURE DURING PREGNANCY [None]
  - HEARING IMPAIRED [None]
  - HYPERAESTHESIA [None]
